FAERS Safety Report 18730184 (Version 2)
Quarter: 2021Q1

REPORT INFORMATION
  Report Type: Spontaneous
  Country: US (occurrence: US)
  Receive Date: 20210112
  Receipt Date: 20210121
  Transmission Date: 20210419
  Serious: Yes (Death, Life-Threatening, Hospitalization, Other)
  Sender: FDA-Public Use
  Company Number: US-009507513-2101USA002420

PATIENT
  Age: 78 Year
  Sex: Male

DRUGS (6)
  1. PROTONIX [Concomitant]
     Active Substance: PANTOPRAZOLE SODIUM
  2. PREDNISONE. [Concomitant]
     Active Substance: PREDNISONE
  3. LASIX [Concomitant]
     Active Substance: FUROSEMIDE
  4. KEYTRUDA [Suspect]
     Active Substance: PEMBROLIZUMAB
     Indication: LUNG NEOPLASM MALIGNANT
     Dosage: 200MG/21 DAYS
     Route: 042
     Dates: start: 20201226, end: 20201226
  5. POTASSIUM (UNSPECIFIED) [Concomitant]
     Active Substance: POTASSIUM
  6. MIDODRINE HYDROCHLORIDE. [Concomitant]
     Active Substance: MIDODRINE HYDROCHLORIDE

REACTIONS (2)
  - Death [Fatal]
  - Hypotension [Recovered/Resolved]

NARRATIVE: CASE EVENT DATE: 20201226
